FAERS Safety Report 6858103-8 (Version None)
Quarter: 2010Q3

REPORT INFORMATION
  Report Type: 
  Country: None (occurrence: None)
  Receive Date: 20100719
  Receipt Date: 20080529
  Transmission Date: 20110219
  Serious: No
  Sender: FDA-Public Use
  Company Number: US-PFIZER INC-2008009318

PATIENT
  Sex: Female
  Weight: 117.93 kg

DRUGS (2)
  1. CHANTIX [Suspect]
     Indication: SMOKING CESSATION THERAPY
     Dates: start: 20071228, end: 20080119
  2. IBUPROFEN [Concomitant]

REACTIONS (5)
  - HYPOAESTHESIA FACIAL [None]
  - ORAL PAIN [None]
  - PARAESTHESIA [None]
  - TOOTH ABSCESS [None]
  - TOOTHACHE [None]
